FAERS Safety Report 6171233-1 (Version None)
Quarter: 2009Q2

REPORT INFORMATION
  Report Type: 
  Country: None (occurrence: None)
  Receive Date: 20090428
  Receipt Date: 20090428
  Transmission Date: 20091009
  Serious: Yes (Other)
  Sender: FDA-Public Use
  Company Number: None

PATIENT
  Age: 48 Year
  Sex: Male
  Weight: 74.8435 kg

DRUGS (4)
  1. LISINOPRIL [Suspect]
     Indication: HYPERTENSION
     Dosage: 10MG 1 PER DAY PO
     Route: 048
     Dates: start: 20090414, end: 20090425
  2. PRISTIQ [Concomitant]
  3. CLONAZEPAM [Concomitant]
  4. FEXAFENADINE/ALLEGRA [Concomitant]

REACTIONS (3)
  - ABDOMINAL PAIN [None]
  - DIARRHOEA [None]
  - PERFORMANCE STATUS DECREASED [None]
